FAERS Safety Report 10665151 (Version 1)
Quarter: 2014Q4

REPORT INFORMATION
  Report Type: Spontaneous
  Country: CH (occurrence: CH)
  Receive Date: 20141219
  Receipt Date: 20141219
  Transmission Date: 20150529
  Serious: Yes (Hospitalization, Other)
  Sender: FDA-Public Use
  Company Number: CH-WATSON-2014-26869

PATIENT
  Age: 30 Year
  Sex: Female

DRUGS (1)
  1. PREGABALIN (UNKNOWN) [Suspect]
     Active Substance: PREGABALIN
     Indication: PAIN IN EXTREMITY
     Dosage: 150 MG, BID
     Route: 065

REACTIONS (3)
  - Vertigo [Recovered/Resolved]
  - Eye movement disorder [Recovered/Resolved]
  - Cerebellar syndrome [Recovered/Resolved]
